FAERS Safety Report 13912764 (Version 1)
Quarter: 2017Q3

REPORT INFORMATION
  Report Type: Spontaneous
  Country: TW (occurrence: TW)
  Receive Date: 20170828
  Receipt Date: 20170828
  Transmission Date: 20171127
  Serious: Yes (Hospitalization, Other)
  Sender: FDA-Public Use
  Company Number: TW-AMGEN-TWNSP2017128026

PATIENT
  Age: 94 Year
  Sex: Female
  Weight: 44 kg

DRUGS (11)
  1. CARVEDILOL. [Concomitant]
     Active Substance: CARVEDILOL
     Dosage: 6.25 MG, QD
     Route: 048
  2. PARECOXIB [Concomitant]
     Active Substance: PARECOXIB
     Dosage: 40 MG, ONCE, UNK
     Route: 042
  3. CEFAZOLIN SODIUM. [Concomitant]
     Active Substance: CEFAZOLIN SODIUM
     Dosage: 1 G, Q8H, IVF
  4. ETORICOXIB [Concomitant]
     Active Substance: ETORICOXIB
     Dosage: 60 MG, QD
     Route: 048
  5. TRAMADOL + ACETAMINOFEN [Concomitant]
     Active Substance: ACETAMINOPHEN\TRAMADOL
     Dosage: 18.75 MG+162.5 MG
     Route: 048
  6. VANCOMYCIN [Concomitant]
     Active Substance: VANCOMYCIN
     Dosage: 2 G, ONCE IVF, UNK
  7. ACETAMINOPHEN. [Concomitant]
     Active Substance: ACETAMINOPHEN
     Dosage: 500 MG, UNK
     Route: 048
     Dates: start: 20150812
  8. AMOXYCILLIN/CLAVULANIC ACID GENERIC HEALTH [Concomitant]
     Dosage: 500 MG+125 MG
     Route: 048
  9. PROLIA [Suspect]
     Active Substance: DENOSUMAB
     Indication: OSTEOPOROSIS
     Dosage: 60 MG, Q6MO
     Route: 058
     Dates: start: 20150725
  10. NIFEDIPINE. [Concomitant]
     Active Substance: NIFEDIPINE
     Dosage: 30 MG, QD
  11. QUETIAPINE. [Concomitant]
     Active Substance: QUETIAPINE
     Dosage: 25 MG, UNK
     Route: 048

REACTIONS (4)
  - Hypocalcaemia [Recovering/Resolving]
  - Vitamin D decreased [Unknown]
  - Electrocardiogram QT prolonged [Unknown]
  - Hypophosphataemia [Unknown]

NARRATIVE: CASE EVENT DATE: 2015
